FAERS Safety Report 25864375 (Version 1)
Quarter: 2025Q3

REPORT INFORMATION
  Report Type: Spontaneous
  Country: CN (occurrence: CN)
  Receive Date: 20250930
  Receipt Date: 20250930
  Transmission Date: 20251021
  Serious: Yes (Hospitalization, Other)
  Sender: TAKEDA
  Company Number: CN-TAKEDA-2025TUS084010

PATIENT

DRUGS (4)
  1. ENTYVIO [Suspect]
     Active Substance: VEDOLIZUMAB
     Indication: Colitis ulcerative
     Dates: start: 20241015, end: 20241211
  2. ENTYVIO [Suspect]
     Active Substance: VEDOLIZUMAB
  3. ENTYVIO [Suspect]
     Active Substance: VEDOLIZUMAB
  4. ENTYVIO [Suspect]
     Active Substance: VEDOLIZUMAB

REACTIONS (6)
  - Colitis ulcerative [Unknown]
  - Pain [Unknown]
  - Visceral pain [Unknown]
  - Panic disorder [Unknown]
  - Emotional disorder [Unknown]
  - Depression [Unknown]

NARRATIVE: CASE EVENT DATE: 20241103
